FAERS Safety Report 5468636-7 (Version None)
Quarter: 2007Q3

REPORT INFORMATION
  Report Type: 
  Country: None (occurrence: None)
  Receive Date: 20070921
  Receipt Date: 20070907
  Transmission Date: 20080115
  Serious: Yes (Life-Threatening, Hospitalization)
  Sender: FDA-Public Use
  Company Number: 146

PATIENT
  Age: 34 Year
  Sex: Male

DRUGS (4)
  1. CLOZAPINE [Suspect]
     Indication: SCHIZOPHRENIA
     Dosage: 300 MG PO DAILY
  2. VALPROATE SODIUM [Concomitant]
  3. BENZTROPINE [Concomitant]
  4. DIAZEPAM [Concomitant]

REACTIONS (2)
  - GASTROINTESTINAL NECROSIS [None]
  - NECROSIS ISCHAEMIC [None]
